FAERS Safety Report 11733975 (Version 1)
Quarter: 2015Q4

REPORT INFORMATION
  Report Type: Spontaneous
  Country: US (occurrence: None)
  Receive Date: 20151112
  Receipt Date: 20151112
  Transmission Date: 20160304
  Serious: Yes (Other)
  Sender: FDA-Public Use
  Company Number: None

PATIENT
  Age: 58 Year
  Sex: Female

DRUGS (7)
  1. TECFIDERA [Suspect]
     Active Substance: DIMETHYL FUMARATE
     Indication: MULTIPLE SCLEROSIS
     Route: 048
     Dates: start: 20151003, end: 20151011
  2. LYRICA [Concomitant]
     Active Substance: PREGABALIN
  3. PREDNISONE (DELTASONE) [Concomitant]
  4. FOLIC ACID. [Concomitant]
     Active Substance: FOLIC ACID
  5. GLATOPA [Concomitant]
     Active Substance: GLATIRAMER ACETATE
  6. PEG 3350 - ELECTROLYTES (GAVILYTE-C) [Concomitant]
  7. BISACODYL (DULCOLAX) [Concomitant]

REACTIONS (3)
  - Abdominal pain upper [None]
  - Diarrhoea [None]
  - Vomiting [None]

NARRATIVE: CASE EVENT DATE: 20151011
